FAERS Safety Report 5045484-3 (Version None)
Quarter: 2006Q2

REPORT INFORMATION
  Report Type: 
  Country: None (occurrence: None)
  Receive Date: 20060607
  Receipt Date: 20060418
  Transmission Date: 20061013
  Serious: No
  Sender: FDA-Public Use
  Company Number: 2006- BP- 03150BP

PATIENT
  Age: 66 Year
  Sex: Female

DRUGS (13)
  1. SPIRIVA [Suspect]
     Indication: CHRONIC OBSTRUCTIVE PULMONARY DISEASE
     Dosage: 18 MCG (18 MCG), IH
     Route: 055
     Dates: start: 20060228
  2. SPIRIVA [Suspect]
  3. QVAR (BECLOMETASONE DIPROPIONATE) [Concomitant]
  4. ALBUTEROL SPIROS [Concomitant]
  5. MUCINEX [Concomitant]
  6. SINGULAIR [Concomitant]
  7. FOSAMAX [Concomitant]
  8. VITAMINS [Concomitant]
  9. PREDNISONE TAB [Concomitant]
  10. ZITHROMAX [Concomitant]
  11. FLONASE [Concomitant]
  12. IBUPROFEN [Concomitant]
  13. NEXIUM [Concomitant]

REACTIONS (3)
  - AGEUSIA [None]
  - DYSPNOEA [None]
  - SENSORY LOSS [None]
